FAERS Safety Report 10735697 (Version 3)
Quarter: 2015Q1

REPORT INFORMATION
  Report Type: Spontaneous
  Country: US (occurrence: US)
  Receive Date: 20150126
  Receipt Date: 20150213
  Transmission Date: 20150721
  Serious: Yes (Death, Other)
  Sender: FDA-Public Use
  Company Number: US-AMGEN-USASP2015006445

PATIENT
  Age: 85 Year
  Sex: Male
  Weight: 74.83 kg

DRUGS (1)
  1. PROLIA [Suspect]
     Active Substance: DENOSUMAB
     Indication: OSTEOPENIA
     Dosage: 60 MG, Q6MO
     Route: 058
     Dates: start: 20130410, end: 20140417

REACTIONS (5)
  - Sepsis [Fatal]
  - Neutropenia [Fatal]
  - Cerebrovascular accident [Unknown]
  - Haemorrhage intracranial [Fatal]
  - Endocarditis [Unknown]

NARRATIVE: CASE EVENT DATE: 20141114
